FAERS Safety Report 13575071 (Version 6)
Quarter: 2018Q1

REPORT INFORMATION
  Report Type: Report from Study
  Country: IT (occurrence: IT)
  Receive Date: 20170523
  Receipt Date: 20180315
  Transmission Date: 20180508
  Serious: Yes (Hospitalization, Other)
  Sender: FDA-Public Use
  Company Number: IT-UCBSA-2017019730

PATIENT
  Age: 51 Year
  Sex: Male
  Weight: 94 kg

DRUGS (5)
  1. NICOZID [Concomitant]
     Active Substance: ISONIAZID
     Indication: ANTIBIOTIC PROPHYLAXIS
     Dosage: 300 MG, ONCE DAILY (QD)
     Dates: start: 201511
  2. CALCIUM FOLINATE [Concomitant]
     Active Substance: LEUCOVORIN CALCIUM
     Indication: PROPHYLAXIS
     Dosage: 15 MG, ONCE DAILY (QD)
     Dates: start: 20150918
  3. METHOTREXATE. [Suspect]
     Active Substance: METHOTREXATE
     Indication: ARTHRITIS
     Dosage: 20 MG, WEEKLY (QW)
     Route: 058
     Dates: start: 20150405, end: 201701
  4. CELEBREX [Concomitant]
     Active Substance: CELECOXIB
     Indication: SPONDYLITIS
     Dosage: 200 MG, ONCE DAILY (QD)
     Dates: start: 20160326
  5. CERTOLIZUMAB PEGOL [Suspect]
     Active Substance: CERTOLIZUMAB PEGOL
     Indication: SERONEGATIVE ARTHRITIS
     Dosage: 200 MG, EV 2 WEEKS(QOW)
     Route: 058
     Dates: start: 20160530, end: 201701

REACTIONS (1)
  - Sepsis [Recovered/Resolved]

NARRATIVE: CASE EVENT DATE: 20170323
